FAERS Safety Report 4906216-X (Version None)
Quarter: 2006Q1

REPORT INFORMATION
  Report Type: 
  Country: None (occurrence: None)
  Receive Date: 20060202
  Receipt Date: 20060124
  Transmission Date: 20060701
  Serious: Yes (Hospitalization)
  Sender: FDA-Public Use
  Company Number: 2006BH001231

PATIENT
  Age: 7 Year
  Sex: Male
  Weight: 39.9165 kg

DRUGS (1)
  1. RECOMBINATE [Suspect]
     Indication: PROPHYLAXIS
     Dosage: 1000 IU; EVERY 2 D
     Dates: start: 19980101

REACTIONS (3)
  - CATHETER RELATED INFECTION [None]
  - CONVULSION [None]
  - PYREXIA [None]
